FAERS Safety Report 4884518-3 (Version None)
Quarter: 2005Q4

REPORT INFORMATION
  Report Type: 
  Country: None (occurrence: None)
  Receive Date: 20051201
  Receipt Date: 20050912
  Transmission Date: 20060501
  Serious: No
  Sender: FDA-Public Use
  Company Number: 2005PV002028

PATIENT
  Sex: Male

DRUGS (1)
  1. BYETTA [Suspect]
     Indication: BLOOD GLUCOSE ABNORMAL
     Dosage: 10 MCG;BID;SC
     Route: 058
     Dates: start: 20050601

REACTIONS (10)
  - DECREASED APPETITE [None]
  - DIZZINESS [None]
  - INFLUENZA LIKE ILLNESS [None]
  - INJECTION SITE BRUISING [None]
  - INJECTION SITE HAEMORRHAGE [None]
  - NAUSEA [None]
  - PAIN [None]
  - PYREXIA [None]
  - VOMITING [None]
  - WEIGHT DECREASED [None]
